FAERS Safety Report 5256006-6 (Version None)
Quarter: 2007Q1

REPORT INFORMATION
  Report Type: 
  Country: None (occurrence: None)
  Receive Date: 20070301
  Receipt Date: 20070216
  Transmission Date: 20070707
  Serious: Yes (Hospitalization)
  Sender: FDA-Public Use
  Company Number: 2007RL000067

PATIENT
  Age: 76 Year
  Sex: Female

DRUGS (5)
  1. OMACOR [Suspect]
     Indication: DIABETES MELLITUS
     Dosage: 2 GM;QD;PO
     Route: 048
     Dates: start: 20061023, end: 20070117
  2. OMACOR [Suspect]
     Indication: HYPERGLYCAEMIA
     Dosage: 2 GM;QD;PO
     Route: 048
     Dates: start: 20061023, end: 20070117
  3. SIMVASTATIN [Suspect]
     Indication: DIABETES MELLITUS
     Dosage: 20 MG;QD;PO
     Route: 048
     Dates: start: 20061023, end: 20070117
  4. SIMVASTATIN [Suspect]
     Indication: HYPERGLYCAEMIA
     Dosage: 20 MG;QD;PO
     Route: 048
     Dates: start: 20061023, end: 20070117
  5. ACTONEL [Concomitant]

REACTIONS (1)
  - HEADACHE [None]
